FAERS Safety Report 10207088 (Version 1)
Quarter: 2014Q2

REPORT INFORMATION
  Report Type: Spontaneous
  Country: US (occurrence: None)
  Receive Date: 20140529
  Receipt Date: 20140529
  Transmission Date: 20141212
  Serious: No
  Sender: FDA-Public Use
  Company Number: None

PATIENT
  Age: 50 Year
  Sex: Female
  Weight: 51.71 kg

DRUGS (3)
  1. COPAXONE [Suspect]
     Indication: MULTIPLE SCLEROSIS
     Dates: start: 20121115
  2. VITAMIN D [Concomitant]
  3. MULTIVITAMIN FOR WOMEN 1 QD [Concomitant]

REACTIONS (5)
  - Flushing [None]
  - Dyspnoea [None]
  - Nausea [None]
  - Palpitations [None]
  - Dizziness [None]
